FAERS Safety Report 5194799-7 (Version None)
Quarter: 2006Q4

REPORT INFORMATION
  Report Type: 
  Country: None (occurrence: None)
  Receive Date: 20061229
  Receipt Date: 20061205
  Transmission Date: 20070319
  Serious: Yes (Other)
  Sender: FDA-Public Use
  Company Number: US-ROCHE-473940

PATIENT
  Age: 40 Year
  Sex: Female
  Weight: 49.9 kg

DRUGS (6)
  1. CELLCEPT [Suspect]
     Route: 065
     Dates: start: 20001203, end: 20060808
  2. PROCRIT [Suspect]
     Indication: NEPHROGENIC ANAEMIA
     Route: 058
     Dates: start: 20040615
  3. PROCRIT [Suspect]
     Route: 058
     Dates: start: 20050109, end: 20060808
  4. PREDNISONE TAB [Concomitant]
  5. CYCLOSPORINE [Concomitant]
     Indication: HYPERTENSION
  6. CLONIDINE [Concomitant]
     Indication: HYPERTENSION

REACTIONS (5)
  - ANAEMIA [None]
  - APLASIA PURE RED CELL [None]
  - DRUG SPECIFIC ANTIBODY ABSENT [None]
  - HYPERPARATHYROIDISM [None]
  - THERAPEUTIC RESPONSE DECREASED [None]
